FAERS Safety Report 7084715-5 (Version None)
Quarter: 2010Q4

REPORT INFORMATION
  Report Type: 
  Country: None (occurrence: None)
  Receive Date: 20101104
  Receipt Date: 20101025
  Transmission Date: 20110411
  Serious: Yes (Life-Threatening, Hospitalization)
  Sender: FDA-Public Use
  Company Number: FR-AMGEN-FRASP2010001099

PATIENT

DRUGS (6)
  1. NEULASTA [Suspect]
     Dosage: UNK
     Route: 058
     Dates: start: 20100827, end: 20100827
  2. RITUXIMAB [Concomitant]
     Dosage: UNK
     Dates: start: 20100824
  3. CYCLOPHOSPHAMIDE [Concomitant]
     Dosage: UNK
     Dates: start: 20100824
  4. DOXORUBICIN HCL [Concomitant]
  5. ONCOVIN [Concomitant]
     Dosage: UNK
     Dates: start: 20100824
  6. PREDNISOLONE [Suspect]

REACTIONS (5)
  - CROHN'S DISEASE [None]
  - FEBRILE NEUTROPENIA [None]
  - RENAL FAILURE ACUTE [None]
  - SEPSIS [None]
  - THERAPEUTIC RESPONSE DECREASED [None]
